FAERS Safety Report 15618032 (Version 1)
Quarter: 2018Q4

REPORT INFORMATION
  Report Type: Spontaneous
  Country: AU (occurrence: AU)
  Receive Date: 20181114
  Receipt Date: 20181114
  Transmission Date: 20190205
  Serious: Yes (Other)
  Sender: FDA-Public Use
  Company Number: AU-IMPAX LABORATORIES, LLC-2018-IPXL-03731

PATIENT
  Age: 9 Year
  Sex: Female

DRUGS (2)
  1. CLOBAZAM. [Suspect]
     Active Substance: CLOBAZAM
     Indication: GENERALISED TONIC-CLONIC SEIZURE
     Dosage: UNK
     Route: 065
  2. DIVALPROEX SODIUM ER [Suspect]
     Active Substance: DIVALPROEX SODIUM
     Indication: GENERALISED TONIC-CLONIC SEIZURE
     Dosage: UNK
     Route: 065

REACTIONS (6)
  - Apnoea [Recovering/Resolving]
  - Somnolence [Recovering/Resolving]
  - Obstructive airways disorder [Recovering/Resolving]
  - Lethargy [Unknown]
  - Depressed level of consciousness [Recovering/Resolving]
  - Central-alveolar hypoventilation [Recovering/Resolving]
